FAERS Safety Report 7910349-3 (Version None)
Quarter: 2011Q4

REPORT INFORMATION
  Report Type: 
  Country: None (occurrence: None)
  Receive Date: 20111111
  Receipt Date: 20111103
  Transmission Date: 20120403
  Serious: Yes (Hospitalization)
  Sender: FDA-Public Use
  Company Number: BE-ROCHE-1009079

PATIENT
  Sex: Female
  Weight: 40.4 kg

DRUGS (5)
  1. MABTHERA [Suspect]
     Indication: DIFFUSE LARGE B-CELL LYMPHOMA
     Dates: start: 20111024
  2. FRAXIPARINE [Concomitant]
     Indication: PROPHYLAXIS
     Route: 058
     Dates: start: 20110714, end: 20111102
  3. HYDROCORTISONE [Concomitant]
     Indication: ADRENAL INSUFFICIENCY
     Route: 048
     Dates: start: 20110727, end: 20111102
  4. DAFLON (BELGIUM) [Concomitant]
     Indication: PROPHYLAXIS
     Route: 048
     Dates: start: 20110926, end: 20111102
  5. ACYCLOVIR [Concomitant]
     Indication: PROPHYLAXIS
     Route: 048
     Dates: start: 20110714, end: 20111102

REACTIONS (1)
  - BRAIN NEOPLASM [None]
